FAERS Safety Report 7728882-6 (Version None)
Quarter: 2011Q3

REPORT INFORMATION
  Report Type: 
  Country: None (occurrence: None)
  Receive Date: 20110906
  Receipt Date: 20110825
  Transmission Date: 20111222
  Serious: Yes (Other)
  Sender: FDA-Public Use
  Company Number: PHHY2011GB75857

PATIENT
  Age: 30 Year
  Sex: Male

DRUGS (2)
  1. AMOXICILLIN [Suspect]
     Route: 048
     Dates: start: 20110811, end: 20110812
  2. IBUPROFEN [Concomitant]

REACTIONS (4)
  - ABNORMAL BEHAVIOUR [None]
  - ACUTE PSYCHOSIS [None]
  - THINKING ABNORMAL [None]
  - HALLUCINATION, AUDITORY [None]
